FAERS Safety Report 14835032 (Version 1)
Quarter: 2018Q2

REPORT INFORMATION
  Report Type: Spontaneous
  Country: DE (occurrence: DE)
  Receive Date: 20180501
  Receipt Date: 20180501
  Transmission Date: 20180711
  Serious: Yes (Hospitalization)
  Sender: FDA-Public Use
  Company Number: DE-CONCORDIA PHARMACEUTICALS INC.-E2B_00011478

PATIENT
  Age: 55 Year
  Sex: Male
  Weight: 94 kg

DRUGS (8)
  1. VIGANTOLETTEN 1000I.E. [Concomitant]
     Dosage: 1000 IE, 1-0-0-0, TABLETTEN
     Route: 048
  2. TORASEMID [Concomitant]
     Active Substance: TORSEMIDE
     Dosage: 5 MG, 2-1-0-0, TABLETTEN
     Route: 048
  3. PREDNISOLONE. [Suspect]
     Active Substance: PREDNISOLONE
     Dosage: 5 MG, 1-0-0-0, TABLETTEN
     Route: 048
  4. AMLODIPINE [Concomitant]
     Active Substance: AMLODIPINE BESYLATE
     Dosage: 10 MG, 1-0-0-0, TABLETTEN
     Route: 048
  5. BENZBROMARONE [Concomitant]
     Active Substance: BENZBROMARONE
     Dosage: 100 MG, 1-0-0-0, TABLETTEN
     Route: 048
  6. AZATHIOPRINE. [Suspect]
     Active Substance: AZATHIOPRINE
     Dosage: 50 MG, 3-0-0-0, TABLETTEN
     Route: 048
  7. METOPROLOL. [Concomitant]
     Active Substance: METOPROLOL
     Dosage: 47.5 MG, 1-0-1-0, TABLETTEN
     Route: 048
  8. VALSARTAN. [Concomitant]
     Active Substance: VALSARTAN
     Dosage: 80 MG, 1-0-1-0, TABLETTEN
     Route: 048

REACTIONS (7)
  - Cough [Unknown]
  - Pyrexia [Unknown]
  - Dyspnoea [Unknown]
  - Fatigue [Unknown]
  - Weight decreased [Unknown]
  - Cytomegalovirus infection [Unknown]
  - General physical health deterioration [Unknown]
